FAERS Safety Report 4909678-7 (Version None)
Quarter: 2006Q1

REPORT INFORMATION
  Report Type: 
  Country: None (occurrence: None)
  Receive Date: 20060209
  Receipt Date: 20060131
  Transmission Date: 20060701
  Serious: Yes (Hospitalization)
  Sender: FDA-Public Use
  Company Number: 2006BI001843

PATIENT
  Age: 51 Year
  Sex: Female

DRUGS (2)
  1. AVONEX LYOPHILIZED [Suspect]
     Indication: MULTIPLE SCLEROSIS
     Dosage: 30 UG; QW; IM
     Route: 030
     Dates: start: 20000708, end: 20030818
  2. AVONEX LIQUID [Suspect]
     Indication: MULTIPLE SCLEROSIS
     Dosage: 30 UG; QW;  IM
     Route: 030
     Dates: start: 20030826

REACTIONS (5)
  - DECUBITUS ULCER [None]
  - HYPOTENSION [None]
  - INFECTED SKIN ULCER [None]
  - RESPIRATORY FAILURE [None]
  - URINARY TRACT INFECTION [None]
